FAERS Safety Report 13291105 (Version 3)
Quarter: 2017Q2

REPORT INFORMATION
  Report Type: Spontaneous
  Country: FR (occurrence: FR)
  Receive Date: 20170302
  Receipt Date: 20170405
  Transmission Date: 20170830
  Serious: Yes (Disabling, Other)
  Sender: FDA-Public Use
  Company Number: FR-JNJFOC-20170222615

PATIENT
  Sex: Male

DRUGS (5)
  1. RISPERDAL [Suspect]
     Active Substance: RISPERIDONE
     Indication: CHILDHOOD PSYCHOSIS
     Dosage: STARTED WHEN THE PATIENT WAS 12,14 OR 16-YEARS-OLD
     Route: 065
     Dates: end: 201701
  2. RISPERDAL [Suspect]
     Active Substance: RISPERIDONE
     Indication: DEPRESSION
     Dosage: STARTED WHEN THE PATIENT WAS 12,14 OR 16-YEARS-OLD
     Route: 065
     Dates: end: 201701
  3. XANAX [Concomitant]
     Active Substance: ALPRAZOLAM
     Route: 065
  4. RISPERDAL [Suspect]
     Active Substance: RISPERIDONE
     Indication: DEPRESSION
     Dosage: FOR SEVERAL YEARS; STARTED WHEN 5-YEAR-OLD
     Route: 065
  5. RISPERDAL [Suspect]
     Active Substance: RISPERIDONE
     Indication: CHILDHOOD PSYCHOSIS
     Dosage: FOR SEVERAL YEARS; STARTED WHEN 5-YEAR-OLD
     Route: 065

REACTIONS (6)
  - Muscle atrophy [Not Recovered/Not Resolved]
  - Off label use [Unknown]
  - Incorrect drug administration duration [Unknown]
  - Product use in unapproved indication [Unknown]
  - Myocarditis [Unknown]
  - Cardiac disorder [Not Recovered/Not Resolved]

NARRATIVE: CASE EVENT DATE: 2015
